FAERS Safety Report 6496751-8 (Version None)
Quarter: 2009Q4

REPORT INFORMATION
  Report Type: 
  Country: None (occurrence: None)
  Receive Date: 20091211
  Receipt Date: 20091201
  Transmission Date: 20100525
  Serious: Yes (Death)
  Sender: FDA-Public Use
  Company Number: 053

PATIENT
  Age: 94 Year
  Sex: Female

DRUGS (1)
  1. FAZACLO ODT [Suspect]
     Indication: PSYCHOTIC DISORDER
     Dosage: 12.5 MG PO DAILY
     Route: 048
     Dates: start: 20060328, end: 20060407

REACTIONS (1)
  - COR PULMONALE [None]
